FAERS Safety Report 24167207 (Version 1)
Quarter: 2024Q3

REPORT INFORMATION
  Report Type: Spontaneous
  Country: US (occurrence: US)
  Receive Date: 20240802
  Receipt Date: 20240802
  Transmission Date: 20241017
  Serious: No
  Sender: Haleon PLC
  Company Number: US-HALEON-2190179

PATIENT
  Age: 77 Year
  Sex: Male

DRUGS (1)
  1. ALLI [Suspect]
     Active Substance: ORLISTAT
     Indication: Weight decreased
     Dosage: TIME INTERVAL: 0.33333333 DAYS: 2 APIECE, 2-3 TIMES A DAY

REACTIONS (1)
  - Diarrhoea [Not Recovered/Not Resolved]
